FAERS Safety Report 8879104 (Version 1)
Quarter: 2012Q4

REPORT INFORMATION
  Report Type: Spontaneous
  Country: US (occurrence: None)
  Receive Date: 20121031
  Receipt Date: 20121031
  Transmission Date: 20130627
  Serious: Yes (Hospitalization)
  Sender: FDA-Public Use
  Company Number: None

PATIENT
  Sex: Male
  Weight: 81.3 kg

DRUGS (2)
  1. GEMCITABINE [Suspect]
     Indication: SMALL CELL LUNG CANCER
     Route: 042
     Dates: start: 20120618, end: 20121023
  2. INVESTIGATIONAL STUDY DRUG [Suspect]
     Indication: SMALL CELL LUNG CANCER
     Route: 042
     Dates: start: 20120618, end: 20121023

REACTIONS (8)
  - Hypertension [None]
  - Mental status changes [None]
  - Memory impairment [None]
  - Confusional state [None]
  - Aphasia [None]
  - Leukoencephalopathy [None]
  - Cerebral ischaemia [None]
  - Treatment noncompliance [None]
